FAERS Safety Report 5141828-2 (Version None)
Quarter: 2006Q4

REPORT INFORMATION
  Report Type: 
  Country: None (occurrence: None)
  Receive Date: 20061027
  Receipt Date: 20061012
  Transmission Date: 20070319
  Serious: Yes (Other)
  Sender: FDA-Public Use
  Company Number: PHBS2006IT16168

PATIENT
  Age: 50 Year
  Sex: Female

DRUGS (1)
  1. VISUDYNE [Suspect]
     Indication: CHOROIDAL DYSTROPHY

REACTIONS (11)
  - ACUTE RESPIRATORY DISTRESS SYNDROME [None]
  - ANAPHYLACTOID REACTION [None]
  - BLOOD PRESSURE SYSTOLIC INCREASED [None]
  - COUGH [None]
  - DRUG HYPERSENSITIVITY [None]
  - ERYTHEMA [None]
  - FEELING HOT [None]
  - HYPERHIDROSIS [None]
  - INFUSION RELATED REACTION [None]
  - LARYNGOSPASM [None]
  - SENSORY DISTURBANCE [None]
